FAERS Safety Report 8142836-X (Version None)
Quarter: 2012Q1

REPORT INFORMATION
  Report Type: 
  Country: None (occurrence: None)
  Receive Date: 20120216
  Receipt Date: 20120208
  Transmission Date: 20120608
  Serious: Yes (Hospitalization)
  Sender: FDA-Public Use
  Company Number: MY-BRISTOL-MYERS SQUIBB COMPANY-16349391

PATIENT
  Age: 41 Year
  Sex: Male

DRUGS (2)
  1. AMLODIPINE [Concomitant]
     Dates: start: 20111213
  2. ABILIFY [Suspect]
     Indication: SCHIZOPHRENIA
     Dosage: 25OCT-096NOV116MG.10NOV-05DEC11 12MG(6DEC11-20DEC11: 18MG15DAYS),(21DEC11-05JAN12:16DAYS 24MG)
     Route: 048
     Dates: start: 20111025, end: 20120105

REACTIONS (1)
  - SCHIZOPHRENIA [None]
